FAERS Safety Report 18810579 (Version 1)
Quarter: 2021Q1

REPORT INFORMATION
  Report Type: Spontaneous
  Country: US (occurrence: US)
  Receive Date: 20210129
  Receipt Date: 20210129
  Transmission Date: 20210419
  Serious: Yes (Disabling, Other)
  Sender: FDA-Public Use
  Company Number: US-BIOMARINAP-US-2021-134719

PATIENT
  Age: 26 Year
  Sex: Male

DRUGS (1)
  1. ALDURAZYME [Suspect]
     Active Substance: LARONIDASE
     Indication: MUCOPOLYSACCHARIDOSIS I
     Dosage: 43.50 MILLIGRAM, QW
     Route: 042
     Dates: start: 20040212

REACTIONS (2)
  - Moyamoya disease [Unknown]
  - Deafness [Unknown]

NARRATIVE: CASE EVENT DATE: 202012
